FAERS Safety Report 11282751 (Version 1)
Quarter: 2015Q3

REPORT INFORMATION
  Report Type: Spontaneous
  Country: CH (occurrence: CH)
  Receive Date: 20150720
  Receipt Date: 20150720
  Transmission Date: 20151125
  Serious: Yes (Other)
  Sender: FDA-Public Use
  Company Number: CH-ELI_LILLY_AND_COMPANY-CH201507003396

PATIENT
  Age: 61 Year
  Sex: Female
  Weight: 68 kg

DRUGS (2)
  1. PEMETREXED [Suspect]
     Active Substance: PEMETREXED
     Indication: LUNG ADENOCARCINOMA METASTATIC
     Dosage: UNK UNK, UNKNOWN
     Route: 048
  2. CISPLATIN. [Interacting]
     Active Substance: CISPLATIN
     Indication: LUNG ADENOCARCINOMA METASTATIC
     Dosage: UNK UNK, UNKNOWN
     Route: 065

REACTIONS (6)
  - Arteriosclerosis [Unknown]
  - Inflammation [Unknown]
  - Kidney fibrosis [Unknown]
  - Renal failure [Unknown]
  - Renal tubular atrophy [Unknown]
  - Drug interaction [Unknown]

NARRATIVE: CASE EVENT DATE: 201412
